FAERS Safety Report 8227898-3 (Version None)
Quarter: 2012Q1

REPORT INFORMATION
  Report Type: 
  Country: None (occurrence: None)
  Receive Date: 20120322
  Receipt Date: 20120307
  Transmission Date: 20120608
  Serious: Yes (Death)
  Sender: FDA-Public Use
  Company Number: JP-ROCHE-726142

PATIENT
  Age: 44 Year
  Sex: Female

DRUGS (24)
  1. RABEPRAZOLE SODIUM [Concomitant]
     Route: 048
  2. HICEE [Concomitant]
     Route: 048
  3. PULMICORT [Concomitant]
     Dosage: ROUTE: RESPIRATORY INHALATION
     Route: 055
  4. URSO 250 [Concomitant]
     Route: 048
  5. VALCYTE [Suspect]
     Route: 048
     Dates: start: 20100510, end: 20100524
  6. GLYCYRON [Concomitant]
     Route: 048
  7. CLINDAMYCIN PHOSPHATE [Concomitant]
     Route: 061
  8. NEO-MINOPHAGEN C [Concomitant]
     Route: 042
  9. ISODINE [Concomitant]
     Dosage: ROUTE: OROPHAINGEAL, GARGLE
     Route: 050
  10. GRAN [Concomitant]
     Route: 058
  11. VALCYTE [Suspect]
     Indication: CYTOMEGALOVIRUS INFECTION
     Route: 048
     Dates: start: 20100331, end: 20100410
  12. LEVOFLOXACIN [Concomitant]
     Route: 048
  13. SLOW-K [Concomitant]
     Route: 048
  14. FIRSTCIN [Concomitant]
     Route: 042
  15. MICONAZOLE [Suspect]
     Indication: PRODUCT USED FOR UNKNOWN INDICATION
     Route: 048
  16. VALCYTE [Suspect]
     Route: 048
     Dates: start: 20100527, end: 20100607
  17. MAGNESOL [Concomitant]
     Route: 042
  18. SCOPOLAMINE [Concomitant]
     Route: 048
  19. VENTOLIN [Concomitant]
     Dosage: ROUTE: RESPIRATORY INHALATION
     Route: 055
  20. PENTAMIDINE ISETHIONATE [Concomitant]
     Dosage: ROUTR: RESPIRATORY INHALATION
     Route: 055
  21. PROGRAF [Concomitant]
     Route: 048
  22. ZOVIRAX [Concomitant]
     Route: 048
  23. HIRUDOID [Concomitant]
     Route: 061
  24. VALCYTE [Suspect]
     Route: 048
     Dates: start: 20100713, end: 20100726

REACTIONS (6)
  - RASH PAPULAR [None]
  - DIARRHOEA [None]
  - URTICARIA [None]
  - INFECTION [None]
  - PLATELET COUNT DECREASED [None]
  - IRON OVERLOAD [None]
